FAERS Safety Report 10615312 (Version 1)
Quarter: 2014Q4

REPORT INFORMATION
  Report Type: Spontaneous
  Country: US (occurrence: US)
  Receive Date: 20141201
  Receipt Date: 20141201
  Transmission Date: 20150529
  Serious: No
  Sender: FDA-Public Use
  Company Number: US-PFIZER INC-2014324920

PATIENT
  Age: 49 Year
  Sex: Female
  Weight: 157 kg

DRUGS (2)
  1. NABUMETONE. [Concomitant]
     Active Substance: NABUMETONE
  2. LYRICA [Suspect]
     Active Substance: PREGABALIN
     Indication: NEURALGIA
     Dosage: 50 MG, 3X/DAY
     Route: 048
     Dates: end: 20141121

REACTIONS (1)
  - Back pain [Not Recovered/Not Resolved]
